FAERS Safety Report 4855126-5 (Version None)
Quarter: 2005Q4

REPORT INFORMATION
  Report Type: 
  Country: None (occurrence: None)
  Receive Date: 20051125
  Receipt Date: 20041119
  Transmission Date: 20060501
  Serious: Yes (Other)
  Sender: FDA-Public Use
  Company Number: US-JNJFOC-20040909813

PATIENT
  Age: 29 Year
  Sex: Male
  Weight: 87.0906 kg

DRUGS (1)
  1. LEVAQUIN [Suspect]
     Indication: SUBCUTANEOUS ABSCESS
     Dosage: 750 MG, 1 IN 1 DAY, ORAL
     Route: 048
     Dates: start: 20040902, end: 20040903

REACTIONS (2)
  - CONTUSION [None]
  - LOSS OF CONSCIOUSNESS [None]
